FAERS Safety Report 19195242 (Version 13)
Quarter: 2025Q2

REPORT INFORMATION
  Report Type: Report from Study
  Country: AU (occurrence: AU)
  Receive Date: 20210429
  Receipt Date: 20250422
  Transmission Date: 20250716
  Serious: Yes (Other)
  Sender: TAKEDA
  Company Number: AU-TAKEDA-2020TUS002615

PATIENT
  Age: 34 Year
  Sex: Female

DRUGS (5)
  1. VEDOLIZUMAB [Suspect]
     Active Substance: VEDOLIZUMAB
     Indication: Colitis ulcerative
  2. VEDOLIZUMAB [Suspect]
     Active Substance: VEDOLIZUMAB
     Dosage: 300 MILLIGRAM, Q4WEEKS
     Dates: start: 20230320
  3. VEDOLIZUMAB [Suspect]
     Active Substance: VEDOLIZUMAB
     Dosage: 300 MILLIGRAM, Q4WEEKS
  4. VEDOLIZUMAB [Suspect]
     Active Substance: VEDOLIZUMAB
     Dosage: 300 MILLIGRAM, Q4WEEKS
  5. VEDOLIZUMAB [Suspect]
     Active Substance: VEDOLIZUMAB
     Dosage: 300 MILLIGRAM, Q4WEEKS

REACTIONS (4)
  - Colitis ulcerative [Unknown]
  - Blood pressure systolic decreased [Recovered/Resolved]
  - Blood pressure decreased [Not Recovered/Not Resolved]
  - Inappropriate schedule of product administration [Recovered/Resolved]

NARRATIVE: CASE EVENT DATE: 20230320
